FAERS Safety Report 5051503-0 (Version None)
Quarter: 2006Q3

REPORT INFORMATION
  Report Type: 
  Country: None (occurrence: None)
  Receive Date: 20060714
  Receipt Date: 20060607
  Transmission Date: 20061208
  Serious: Yes (Death, Life-Threatening, Hospitalization, Disabling)
  Sender: FDA-Public Use
  Company Number: PHHO2006FR09341

PATIENT
  Age: 56 Year
  Sex: Male
  Weight: 78 kg

DRUGS (9)
  1. OMEPRAZOLE [Concomitant]
  2. HEPARIN [Concomitant]
  3. BACTRIM [Concomitant]
  4. ROVALCYTE [Concomitant]
  5. INSULIN [Concomitant]
  6. FUROSEMIDE [Concomitant]
  7. CERTICAN [Suspect]
     Indication: RENAL TRANSPLANT
     Dosage: 1.5 MG / DAILY
     Route: 048
     Dates: start: 20060503, end: 20060621
  8. NEORAL [Suspect]
     Indication: RENAL TRANSPLANT
     Dosage: 100 MG, BID
     Route: 048
     Dates: start: 20060502, end: 20060528
  9. PREDNISONE [Suspect]
     Indication: RENAL TRANSPLANT
     Dosage: 17.5 MG
     Route: 048
     Dates: start: 20060502

REACTIONS (3)
  - DISEASE PROGRESSION [None]
  - PNEUMONIA [None]
  - SEPTIC SHOCK [None]
